FAERS Safety Report 24799964 (Version 3)
Quarter: 2025Q1

REPORT INFORMATION
  Report Type: Report from Study
  Country: ES (occurrence: ES)
  Receive Date: 20250102
  Receipt Date: 20250325
  Transmission Date: 20250409
  Serious: Yes (Hospitalization)
  Sender: JOHNSON AND JOHNSON
  Company Number: ES-JNJFOC-20241257973

PATIENT
  Age: 73 Year
  Sex: Male
  Weight: 80.3 kg

DRUGS (1)
  1. TALQUETAMAB [Suspect]
     Active Substance: TALQUETAMAB
     Indication: Plasma cell myeloma
     Dosage: LAST DOSE ADMINISTERED ON 02-JAN-2024
     Dates: start: 20231002

REACTIONS (1)
  - Influenza [Recovered/Resolved]

NARRATIVE: CASE EVENT DATE: 20240102
